FAERS Safety Report 6881777-2 (Version None)
Quarter: 2010Q3

REPORT INFORMATION
  Report Type: 
  Country: None (occurrence: None)
  Receive Date: 20100729
  Receipt Date: 20100722
  Transmission Date: 20110219
  Serious: Yes (Other)
  Sender: FDA-Public Use
  Company Number: US-PFIZER INC-2010062473

PATIENT
  Sex: Female
  Weight: 56.689 kg

DRUGS (2)
  1. GEODON [Suspect]
     Indication: SCHIZOPHRENIA
     Dosage: 240 MG, 1X/DAY
     Route: 048
     Dates: start: 20090301
  2. GEODON [Suspect]
     Dosage: UNK
     Route: 048

REACTIONS (3)
  - ALOPECIA [None]
  - CHOLECYSTECTOMY [None]
  - WEIGHT DECREASED [None]
